FAERS Safety Report 13315273 (Version 2)
Quarter: 2017Q2

REPORT INFORMATION
  Report Type: Report from Study
  Country: None (occurrence: AU)
  Receive Date: 20170309
  Receipt Date: 20170413
  Transmission Date: 20170830
  Serious: Yes (Other)
  Sender: FDA-Public Use
  Company Number: AU-ABBVIE-17K-008-1900316-00

PATIENT
  Age: 36 Year
  Sex: Female

DRUGS (1)
  1. HUMIRA [Suspect]
     Active Substance: ADALIMUMAB
     Indication: FAILED IN VITRO FERTILISATION
     Dosage: FOUR DOSES ONE WEEK APART
     Route: 058
     Dates: start: 201612

REACTIONS (4)
  - Exposure during pregnancy [Unknown]
  - Abortion spontaneous [Unknown]
  - Foetal death [Unknown]
  - Immunosuppression [Unknown]

NARRATIVE: CASE EVENT DATE: 20161209
